FAERS Safety Report 4728089-0 (Version None)
Quarter: 2005Q3

REPORT INFORMATION
  Report Type: 
  Country: None (occurrence: None)
  Receive Date: 20050729
  Receipt Date: 20050524
  Transmission Date: 20060218
  Serious: Yes (Hospitalization)
  Sender: FDA-Public Use
  Company Number: PHEH2005US05936

PATIENT
  Age: 75 Year
  Sex: Female

DRUGS (7)
  1. CELEXA [Concomitant]
  2. LOPID [Concomitant]
  3. MIACALCIN [Suspect]
     Indication: OSTEOPOROSIS
     Dosage: 200 IU, QD
  4. VALIUM [Concomitant]
  5. DARVOCET-N 100 [Concomitant]
  6. GLYCERYL TRINITRATE [Concomitant]
  7. PEPCID [Concomitant]

REACTIONS (7)
  - ARTHRALGIA [None]
  - BACK PAIN [None]
  - FALL [None]
  - JOINT INJURY [None]
  - NERVE COMPRESSION [None]
  - PAIN [None]
  - WEIGHT DECREASED [None]
